FAERS Safety Report 5197724-8 (Version None)
Quarter: 2007Q1

REPORT INFORMATION
  Report Type: 
  Country: None (occurrence: None)
  Receive Date: 20070103
  Receipt Date: 20061225
  Transmission Date: 20070707
  Serious: Yes (Hospitalization, Other)
  Sender: FDA-Public Use
  Company Number: JP-JNJFOC-20060202120

PATIENT
  Sex: Female

DRUGS (7)
  1. RISPERDAL [Suspect]
     Indication: SCHIZOPHRENIA
     Dosage: 3-5 MILLIGRAMS DAILY
     Route: 048
  2. SENNA [Concomitant]
     Route: 048
  3. METFORMIN HYDROCHLORIDE [Concomitant]
     Route: 048
  4. MAGNESIUM OXIDE [Concomitant]
     Route: 048
  5. BIPERIDEN HYDROCHLORIDE TAB [Concomitant]
     Route: 048
  6. ASPIRIN [Concomitant]
     Route: 048
  7. BROTIZOLAM [Concomitant]
     Route: 048

REACTIONS (6)
  - ANOREXIA [None]
  - DIABETES MELLITUS INADEQUATE CONTROL [None]
  - HYPERGLYCAEMIA [None]
  - PYELONEPHRITIS [None]
  - PYREXIA [None]
  - RETINOPATHY [None]
